FAERS Safety Report 17676357 (Version 1)
Quarter: 2020Q2

REPORT INFORMATION
  Report Type: Spontaneous
  Country: GB (occurrence: GB)
  Receive Date: 20200416
  Receipt Date: 20200416
  Transmission Date: 20200714
  Serious: Yes (Disabling)
  Sender: FDA-Public Use
  Company Number: GB-AUROBINDO-AUR-APL-2020-018586

PATIENT
  Age: 60 Year
  Sex: Female
  Weight: 66.67 kg

DRUGS (1)
  1. MIRTAZAPINE. [Suspect]
     Active Substance: MIRTAZAPINE
     Indication: ANXIETY
     Dosage: 15 MILLIGRAM
     Route: 048
     Dates: start: 20191010, end: 20200113

REACTIONS (7)
  - Hypotension [Not Recovered/Not Resolved]
  - Gastrointestinal pain [Recovering/Resolving]
  - Nausea [Not Recovered/Not Resolved]
  - Seasonal allergy [Unknown]
  - Dyspnoea [Not Recovered/Not Resolved]
  - Food intolerance [Not Recovered/Not Resolved]
  - Palpitations [Not Recovered/Not Resolved]

NARRATIVE: CASE EVENT DATE: 20200119
